FAERS Safety Report 25127395 (Version 1)
Quarter: 2025Q1

REPORT INFORMATION
  Report Type: Spontaneous
  Country: SE (occurrence: SE)
  Receive Date: 20250327
  Receipt Date: 20250327
  Transmission Date: 20250409
  Serious: Yes (Other)
  Sender: BRISTOL-MYERS SQUIBB COMPANY
  Company Number: SE-BRISTOL-MYERS SQUIBB COMPANY-2025-043716

PATIENT
  Sex: Male

DRUGS (1)
  1. FEDRATINIB [Suspect]
     Active Substance: FEDRATINIB
     Indication: Primary myelofibrosis

REACTIONS (1)
  - Neuropathy peripheral [Unknown]
